FAERS Safety Report 5160217-8 (Version None)
Quarter: 2006Q4

REPORT INFORMATION
  Report Type: 
  Country: None (occurrence: None)
  Receive Date: 20061120
  Receipt Date: 20061106
  Transmission Date: 20070319
  Serious: No
  Sender: FDA-Public Use
  Company Number: C-06-0064

PATIENT
  Age: 6 Month
  Sex: Female
  Weight: 6.3504 kg

DRUGS (1)
  1. FUROSEMIDE [Suspect]
     Indication: CANDIDIASIS
     Dosage: 1 ML 4 TIMES/DAY
     Dates: start: 20061104, end: 20061106

REACTIONS (6)
  - DIARRHOEA [None]
  - DRUG DISPENSING ERROR [None]
  - HYPOCALCAEMIA [None]
  - HYPOKALAEMIA [None]
  - WHEEZING [None]
  - WRONG DRUG ADMINISTERED [None]
